FAERS Safety Report 14480880 (Version 1)
Quarter: 2018Q1

REPORT INFORMATION
  Report Type: Spontaneous
  Country: US (occurrence: US)
  Receive Date: 20180202
  Receipt Date: 20180202
  Transmission Date: 20180509
  Serious: Yes (Other)
  Sender: FDA-Public Use
  Company Number: US-BAYER-2018-016128

PATIENT
  Age: 54 Year
  Sex: Female

DRUGS (4)
  1. RANITIDINE. [Suspect]
     Active Substance: RANITIDINE
     Dosage: 150 MG, UNK
  2. PANTOPRAZOLE [Suspect]
     Active Substance: PANTOPRAZOLE
     Indication: GASTROOESOPHAGEAL REFLUX DISEASE
     Dosage: 40 DF, QD
     Route: 048
  3. VITAMIN B12 [Concomitant]
     Active Substance: CYANOCOBALAMIN
     Dosage: UNK
  4. ALEVE [Suspect]
     Active Substance: NAPROXEN SODIUM
     Indication: INFLAMMATION
     Dosage: 500 MG, BID
     Dates: end: 2017

REACTIONS (8)
  - Haemoglobin decreased [Unknown]
  - Benign neoplasm [Not Recovered/Not Resolved]
  - Gastritis [Unknown]
  - Vitamin D deficiency [Recovering/Resolving]
  - Drug ineffective [Not Recovered/Not Resolved]
  - Iron deficiency [Unknown]
  - Drug ineffective [Not Recovered/Not Resolved]
  - Dyspepsia [None]

NARRATIVE: CASE EVENT DATE: 201610
